FAERS Safety Report 7291694-4 (Version None)
Quarter: 2011Q1

REPORT INFORMATION
  Report Type: 
  Country: None (occurrence: None)
  Receive Date: 20110202
  Receipt Date: 20110117
  Transmission Date: 20110831
  Serious: Yes (Death, Life-Threatening)
  Sender: FDA-Public Use
  Company Number: 1000016835

PATIENT
  Age: 17 Year
  Sex: Female

DRUGS (4)
  1. RISPERDAL [Suspect]
     Dates: start: 20100801, end: 20100813
  2. TERCIAN (CYAMEMAZINE) (SOLUTION) [Suspect]
     Dosage: INTRAVENOUS (NOT OTHERWISE SPECIFIED)
     Route: 042
     Dates: start: 20100801, end: 20100813
  3. TEMESTA (LORAZEPAM) (LORAZEPAM) [Concomitant]
  4. CITALOPRAM (CITALOPRAM HYDROBROMIDE) (20 MILLIGRAM, TABLETS) [Suspect]
     Dosage: 10 MG (10 MG, 1 IN 1 D), ORAL
     Route: 048
     Dates: end: 20100813

REACTIONS (22)
  - WEANING FAILURE [None]
  - PSEUDOMONAS TEST POSITIVE [None]
  - RHABDOMYOLYSIS [None]
  - RESPIRATORY DISTRESS [None]
  - MYOCLONUS [None]
  - HEPATIC FAILURE [None]
  - HYPERKALAEMIA [None]
  - SEPTIC SHOCK [None]
  - MULTI-ORGAN FAILURE [None]
  - ENCEPHALITIS ALLERGIC [None]
  - NEUROLEPTIC MALIGNANT SYNDROME [None]
  - ATELECTASIS [None]
  - CARDIAC FAILURE [None]
  - GASTROINTESTINAL OBSTRUCTION [None]
  - CONTINUOUS HAEMODIAFILTRATION [None]
  - DRUG INEFFECTIVE [None]
  - CYTOLYTIC HEPATITIS [None]
  - INFLAMMATION [None]
  - STATUS EPILEPTICUS [None]
  - HYPERTRIGLYCERIDAEMIA [None]
  - SINUSITIS [None]
  - RENAL FAILURE ACUTE [None]
